FAERS Safety Report 15750544 (Version 1)
Quarter: 2018Q4

REPORT INFORMATION
  Report Type: Spontaneous
  Country: US (occurrence: US)
  Receive Date: 20181221
  Receipt Date: 20181221
  Transmission Date: 20190205
  Serious: No
  Sender: FDA-Public Use
  Company Number: US-LEO PHARMA-315799

PATIENT
  Sex: Female

DRUGS (1)
  1. PROTOPIC [Suspect]
     Active Substance: TACROLIMUS
     Indication: DERMATITIS ATOPIC
     Dosage: USED ONLY 4-5 TIMES OVER COURSE OF 3 WEEKS?USED SINGLE TIME
     Route: 061

REACTIONS (1)
  - Pruritus [Recovered/Resolved]
